FAERS Safety Report 11788898 (Version 1)
Quarter: 2015Q4

REPORT INFORMATION
  Report Type: Spontaneous
  Country: SG (occurrence: SG)
  Receive Date: 20151201
  Receipt Date: 20151201
  Transmission Date: 20160305
  Serious: Yes (Hospitalization, Other)
  Sender: FDA-Public Use
  Company Number: SG-ACTAVIS-2015-18040

PATIENT
  Age: 18 Year
  Sex: Female

DRUGS (4)
  1. NIFEDIPINE (UNKNOWN) [Suspect]
     Active Substance: NIFEDIPINE
     Indication: TOCOLYSIS
     Dosage: 40 MG, Q1H , 10MG EVERY 15MIN FOR 1H
     Route: 048
  2. ERYTHROMYCIN. [Concomitant]
     Active Substance: ERYTHROMYCIN
     Indication: PREMATURE RUPTURE OF MEMBRANES
     Dosage: UNK
     Route: 042
  3. ENTONOX [Concomitant]
     Active Substance: NITROUS OXIDE\OXYGEN
     Indication: PAIN
     Dosage: UNK
     Route: 055
  4. PENICILLIN G                       /00000901/ [Concomitant]
     Active Substance: PENICILLIN G
     Indication: PREMATURE RUPTURE OF MEMBRANES
     Dosage: UNK
     Route: 042

REACTIONS (4)
  - Maternal exposure during pregnancy [Unknown]
  - Off label use [Unknown]
  - Hypotension [Recovered/Resolved]
  - Tachycardia [Recovered/Resolved]
